FAERS Safety Report 9268375 (Version 2)
Quarter: 2013Q2

REPORT INFORMATION
  Report Type: Spontaneous
  Country: US (occurrence: US)
  Receive Date: 20130502
  Receipt Date: 20130530
  Transmission Date: 20140414
  Serious: Yes (Death, Hospitalization, Other)
  Sender: FDA-Public Use
  Company Number: US-B.I. PHARMACEUTICALS,INC./RIDGEFIELD-2013-BI-12179BP

PATIENT
  Age: 80 Year
  Sex: Female

DRUGS (8)
  1. PRADAXA [Suspect]
     Indication: ATRIAL FIBRILLATION
     Dosage: 300 MG
     Route: 048
     Dates: start: 20110330
  2. PRADAXA [Suspect]
     Indication: ANTICOAGULANT THERAPY
  3. LORTAB [Concomitant]
     Route: 048
  4. LASIX [Concomitant]
     Dosage: 80 MG
     Route: 048
  5. KLOR-CON [Concomitant]
     Dosage: 20 MEQ
  6. LISINOPRIL [Concomitant]
     Dosage: 2.5 MG
     Route: 048
  7. ASPIRIN [Concomitant]
     Dosage: 81 MG
     Route: 048
  8. LIPITOR [Concomitant]
     Dosage: 40 MG
     Route: 048

REACTIONS (3)
  - Acute respiratory failure [Fatal]
  - Gastrointestinal haemorrhage [Fatal]
  - Coagulopathy [Unknown]
